FAERS Safety Report 6292542-1 (Version None)
Quarter: 2009Q3

REPORT INFORMATION
  Report Type: 
  Country: None (occurrence: None)
  Receive Date: 20090731
  Receipt Date: 20090724
  Transmission Date: 20100115
  Serious: Yes (Death, Hospitalization)
  Sender: FDA-Public Use
  Company Number: JP-BAYER-200912598BYL

PATIENT
  Age: 85 Year
  Sex: Male
  Weight: 33 kg

DRUGS (9)
  1. CIPROXAN-I.V. [Suspect]
     Indication: ATYPICAL MYCOBACTERIAL INFECTION
     Dosage: TOTAL DAILY DOSE: 600 MG  UNIT DOSE: 300 MG
     Route: 041
     Dates: start: 20090702, end: 20090707
  2. SEISHOKU [Concomitant]
     Route: 041
     Dates: start: 20090702, end: 20090707
  3. URIEF [Concomitant]
     Dosage: TOTAL DAILY DOSE: 4 MG
     Route: 048
     Dates: start: 20090602
  4. VEEN-D [Concomitant]
     Dosage: TOTAL DAILY DOSE: 500 ML
     Route: 042
     Dates: start: 20090704
  5. SOLITA-T NO.3 [Concomitant]
     Dosage: TOTAL DAILY DOSE: 500 ML
     Route: 042
     Dates: start: 20090704
  6. CLARITHROMYCIN [Concomitant]
     Indication: ATYPICAL MYCOBACTERIAL INFECTION
     Dosage: TOTAL DAILY DOSE: 200 MG
     Route: 048
     Dates: start: 20090602, end: 20090627
  7. APTECIN [Concomitant]
     Indication: ATYPICAL MYCOBACTERIAL INFECTION
     Dosage: TOTAL DAILY DOSE: 300 MG
     Route: 048
     Dates: start: 20090617, end: 20090627
  8. EBUTOL [Concomitant]
     Indication: ATYPICAL MYCOBACTERIAL INFECTION
     Dosage: TOTAL DAILY DOSE: 500 MG
     Route: 048
     Dates: start: 20090617, end: 20090627
  9. FINIBAX [Concomitant]
     Indication: ATYPICAL MYCOBACTERIAL INFECTION
     Dosage: TOTAL DAILY DOSE: 0.75 G
     Route: 042
     Dates: start: 20090629, end: 20090701

REACTIONS (1)
  - RENAL IMPAIRMENT [None]
